FAERS Safety Report 7411597-1 (Version None)
Quarter: 2011Q2

REPORT INFORMATION
  Report Type: 
  Country: None (occurrence: None)
  Receive Date: 20110413
  Receipt Date: 20100921
  Transmission Date: 20111010
  Serious: Yes (Other)
  Sender: FDA-Public Use
  Company Number: US-BRISTOL-MYERS SQUIBB COMPANY-15296775

PATIENT
  Age: 4 Decade
  Sex: Male

DRUGS (2)
  1. RADIATION THERAPY [Concomitant]
  2. ERBITUX [Suspect]
     Dosage: LOADING DOSE OF 800MG/M2 DAY ONE CYCLE ONE

REACTIONS (1)
  - INFUSION RELATED REACTION [None]
